FAERS Safety Report 18602413 (Version 1)
Quarter: 2020Q4

REPORT INFORMATION
  Report Type: Spontaneous
  Country: JP (occurrence: JP)
  Receive Date: 20201210
  Receipt Date: 20201210
  Transmission Date: 20210114
  Serious: Yes (Death, Other)
  Sender: FDA-Public Use
  Company Number: JP-PFIZER INC-2020485529

PATIENT
  Age: 76 Year
  Sex: Male
  Weight: 69.1 kg

DRUGS (11)
  1. SOLU-MEDROL [Suspect]
     Active Substance: METHYLPREDNISOLONE SODIUM SUCCINATE
     Indication: IMMUNE SYSTEM DISORDER
     Dosage: 70 MG, DAILY
     Route: 042
     Dates: start: 20200729
  2. OPDIVO [Suspect]
     Active Substance: NIVOLUMAB
     Indication: RENAL CANCER
     Dosage: 240 MG, CYCLIC
     Route: 042
  3. AMLODIPINE BESILATE [Concomitant]
     Active Substance: AMLODIPINE BESYLATE
     Dosage: 5 MG, DAILY
  4. LAGNOS NF [Concomitant]
     Dosage: 4 DF, DAILY
  5. CALONAL [Concomitant]
     Active Substance: ACETAMINOPHEN
     Dosage: 2000 MG, DAILY
     Dates: start: 20200728
  6. YERVOY [Suspect]
     Active Substance: IPILIMUMAB
     Indication: RENAL CANCER
     Dosage: 70 MG, CYCLIC
     Route: 042
  7. SOLU-MEDROL [Suspect]
     Active Substance: METHYLPREDNISOLONE SODIUM SUCCINATE
     Dosage: 55 MG, DAILY
     Route: 042
     Dates: start: 20200805, end: 20200811
  8. NATRIX [Concomitant]
     Active Substance: INDAPAMIDE
     Dosage: 1 MG, DAILY
  9. QUETIAPIN [Concomitant]
     Active Substance: QUETIAPINE
     Dosage: 25 MG, DAILY
  10. CALONAL [Concomitant]
     Active Substance: ACETAMINOPHEN
     Dosage: 400 MG, DAILY
  11. CLOPIDOGREL SULFATE [Concomitant]
     Active Substance: CLOPIDOGREL BISULFATE
     Dosage: 75 MG, DAILY

REACTIONS (6)
  - Shock [Unknown]
  - Cardiac arrest [Fatal]
  - Respiratory rate decreased [Fatal]
  - Hepatic function abnormal [Not Recovered/Not Resolved]
  - Gastrointestinal haemorrhage [Fatal]
  - Pneumonia aspiration [Unknown]

NARRATIVE: CASE EVENT DATE: 20200722
